FAERS Safety Report 6706974-8 (Version None)
Quarter: 2010Q2

REPORT INFORMATION
  Report Type: 
  Country: None (occurrence: None)
  Receive Date: 20100503
  Receipt Date: 20100423
  Transmission Date: 20101027
  Serious: Yes (Hospitalization)
  Sender: FDA-Public Use
  Company Number: GXKR2010KR04631

PATIENT
  Age: 65 Year
  Sex: Male

DRUGS (3)
  1. DEXAMETHASONE (NGX) [Suspect]
     Indication: MULTIPLE MYELOMA
     Dosage: 40 MG/DAY
     Route: 065
  2. THALIDOMIDE [Interacting]
     Dosage: 200 MG, QD
     Route: 065
  3. THALIDOMIDE [Interacting]
     Dosage: 400 MG, QD
     Route: 065

REACTIONS (9)
  - ANGIOEDEMA [None]
  - DRUG INTERACTION [None]
  - DYSPHAGIA [None]
  - MUCOSAL INFLAMMATION [None]
  - PRURITUS [None]
  - PYREXIA [None]
  - RASH [None]
  - SKIN EXFOLIATION [None]
  - TOXIC EPIDERMAL NECROLYSIS [None]
